FAERS Safety Report 25389156 (Version 1)
Quarter: 2025Q2

REPORT INFORMATION
  Report Type: Spontaneous
  Country: US (occurrence: US)
  Receive Date: 20250603
  Receipt Date: 20250603
  Transmission Date: 20250716
  Serious: Yes (Hospitalization)
  Sender: AJANTA PHARMA USA INC
  Company Number: US-AJANTA-2025AJA00071

PATIENT
  Age: 10 Year
  Sex: Male

DRUGS (2)
  1. CLONIDINE HYDROCHLORIDE [Suspect]
     Active Substance: CLONIDINE HYDROCHLORIDE
     Indication: Laboratory test
     Route: 048
  2. ARGININE [Suspect]
     Active Substance: ARGININE
     Indication: Laboratory test
     Route: 042

REACTIONS (2)
  - Haematuria [Recovered/Resolved]
  - Hypotension [Recovering/Resolving]
